FAERS Safety Report 8206039-2 (Version None)
Quarter: 2012Q1

REPORT INFORMATION
  Report Type: 
  Country: None (occurrence: None)
  Receive Date: 20120313
  Receipt Date: 20120227
  Transmission Date: 20120608
  Serious: Yes (Hospitalization)
  Sender: FDA-Public Use
  Company Number: GB-WATSON-2012-03986

PATIENT
  Age: 48 Year
  Sex: Male

DRUGS (3)
  1. ATENOLOL [Suspect]
     Dosage: UNK
     Route: 065
     Dates: start: 20050101, end: 20070401
  2. ATENOLOL [Suspect]
     Indication: MYOCARDIAL ISCHAEMIA
     Dosage: UNK
     Route: 065
     Dates: start: 20090101, end: 20091101
  3. PROPRANOLOL [Suspect]
     Indication: MYOCARDIAL ISCHAEMIA
     Dosage: ^BD^
     Route: 065
     Dates: start: 20070401, end: 20090101

REACTIONS (1)
  - SCLEROSING ENCAPSULATING PERITONITIS [None]
